FAERS Safety Report 18310703 (Version 2)
Quarter: 2020Q4

REPORT INFORMATION
  Report Type: Spontaneous
  Country: IN (occurrence: IN)
  Receive Date: 20200925
  Receipt Date: 20201023
  Transmission Date: 20210113
  Serious: Yes (Hospitalization, Other)
  Sender: FDA-Public Use
  Company Number: IN-SUN PHARMACEUTICAL INDUSTRIES LTD-2020R1-262259

PATIENT
  Age: 21 Year
  Sex: Female

DRUGS (2)
  1. SALBUTAMOL [Suspect]
     Active Substance: ALBUTEROL
     Indication: ASTHMA
     Dosage: 2 MILLIGRAM, BID
     Route: 048
  2. THEOASTHALIN [Suspect]
     Active Substance: ALBUTEROL\THEOPHYLLINE
     Indication: ASTHMA
     Dosage: 100 MILLIGRAM
     Route: 048

REACTIONS (9)
  - Metabolic acidosis [Unknown]
  - Heart rate increased [Unknown]
  - Hypocalcaemia [Unknown]
  - Blood pressure systolic decreased [Unknown]
  - Depressed level of consciousness [Unknown]
  - Distributive shock [Unknown]
  - Overdose [Unknown]
  - Blood pressure diastolic abnormal [Unknown]
  - Hypokalaemia [Unknown]
